FAERS Safety Report 5497179-X (Version None)
Quarter: 2007Q4

REPORT INFORMATION
  Report Type: 
  Country: None (occurrence: None)
  Receive Date: 20071025
  Receipt Date: 20060901
  Transmission Date: 20080405
  Serious: No
  Sender: FDA-Public Use
  Company Number: A0618941A

PATIENT
  Age: 57 Year
  Sex: Male

DRUGS (20)
  1. ADVAIR DISKUS 100/50 [Suspect]
     Indication: CHRONIC OBSTRUCTIVE PULMONARY DISEASE
     Dosage: 1PUFF TWICE PER DAY
     Route: 055
     Dates: start: 20020101
  2. CONCERTA [Concomitant]
  3. LEXAPRO [Concomitant]
  4. XANAX [Concomitant]
  5. ADVAIR DISKUS 100/50 [Concomitant]
  6. ALBUTEROL [Concomitant]
  7. FLONASE [Concomitant]
  8. SINGULAIR [Concomitant]
  9. PREVACID [Concomitant]
  10. ACCUPRIL [Concomitant]
  11. ADVICOR [Concomitant]
  12. ASPIRIN [Concomitant]
  13. COREG [Concomitant]
  14. FUROSEMIDE [Concomitant]
  15. SOTALOL HYDROCHLORIDE [Concomitant]
  16. SPIRONOLACTONE [Concomitant]
  17. COUMADIN [Concomitant]
  18. ZETIA [Concomitant]
  19. MAGNESIUM SUPPLEMENT [Concomitant]
  20. PROTEIN SUPPLEMENT [Concomitant]

REACTIONS (3)
  - BRONCHITIS [None]
  - DRUG INEFFECTIVE [None]
  - PHARMACEUTICAL PRODUCT COMPLAINT [None]
